FAERS Safety Report 12802902 (Version 1)
Quarter: 2016Q4

REPORT INFORMATION
  Report Type: Spontaneous
  Country: US (occurrence: US)
  Receive Date: 20161003
  Receipt Date: 20161003
  Transmission Date: 20170207
  Serious: Yes (Other)
  Sender: FDA-Public Use
  Company Number: US-PFIZER INC-2016454297

PATIENT
  Age: 45 Year
  Sex: Female

DRUGS (3)
  1. LYRICA [Suspect]
     Active Substance: PREGABALIN
     Indication: DIABETIC NEUROPATHY
     Dosage: 150 MG, 2X/DAY
     Route: 048
     Dates: end: 20160829
  2. LYRICA [Suspect]
     Active Substance: PREGABALIN
     Indication: PAIN
  3. LYRICA [Suspect]
     Active Substance: PREGABALIN
     Indication: RHEUMATOID ARTHRITIS
     Dosage: ONE 150MG CAPSULE IN THE MORNING
     Route: 048
     Dates: start: 20160830

REACTIONS (17)
  - Anxiety [Recovering/Resolving]
  - Decreased appetite [Recovering/Resolving]
  - Blood pressure increased [Recovering/Resolving]
  - Feeling guilty [Recovering/Resolving]
  - Hot flush [Recovering/Resolving]
  - Weight increased [Recovered/Resolved]
  - Intentional product use issue [Unknown]
  - Diarrhoea [Recovering/Resolving]
  - Peripheral swelling [Recovered/Resolved]
  - Suicidal ideation [Recovering/Resolving]
  - Nausea [Recovering/Resolving]
  - Restless legs syndrome [Recovering/Resolving]
  - Chills [Recovering/Resolving]
  - Withdrawal syndrome [Recovering/Resolving]
  - Depression [Recovering/Resolving]
  - Disturbance in attention [Recovering/Resolving]
  - Feeling cold [Recovering/Resolving]

NARRATIVE: CASE EVENT DATE: 20160821
